FAERS Safety Report 12656581 (Version 1)
Quarter: 2016Q3

REPORT INFORMATION
  Report Type: Spontaneous
  Country: US (occurrence: US)
  Receive Date: 20160816
  Receipt Date: 20160816
  Transmission Date: 20161109
  Serious: No
  Sender: FDA-Public Use
  Company Number: US-PERRIGO-15US012480

PATIENT
  Age: 56 Year
  Sex: Female
  Weight: 103.4 kg

DRUGS (2)
  1. LORATADINE. [Suspect]
     Active Substance: LORATADINE
     Dosage: 10 MG, TWICE IN 24 HOURS
     Route: 048
     Dates: start: 20151125, end: 20151125
  2. LORATADINE. [Suspect]
     Active Substance: LORATADINE
     Indication: RHINORRHOEA
     Dosage: 10 MG, QD
     Route: 048
     Dates: start: 2013

REACTIONS (1)
  - Extra dose administered [Recovered/Resolved]

NARRATIVE: CASE EVENT DATE: 20151125
